FAERS Safety Report 17309203 (Version 1)
Quarter: 2020Q1

REPORT INFORMATION
  Report Type: Spontaneous
  Country: GB (occurrence: GB)
  Receive Date: 20200123
  Receipt Date: 20200123
  Transmission Date: 20200409
  Serious: Yes (Other)
  Sender: FDA-Public Use
  Company Number: GB-MYLANLABS-2020M1007500

PATIENT
  Age: 39 Year
  Sex: Female
  Weight: 69.85 kg

DRUGS (2)
  1. TEA, GREEN [Concomitant]
     Active Substance: GREEN TEA LEAF
     Dosage: UNK
  2. CITALOPRAM [Suspect]
     Active Substance: CITALOPRAM HYDROBROMIDE
     Indication: PRODUCT USED FOR UNKNOWN INDICATION
     Dosage: 20 MILLIGRAM
     Route: 048
     Dates: start: 20191014

REACTIONS (6)
  - Palpitations [Unknown]
  - Feeling cold [Unknown]
  - Paraesthesia [Unknown]
  - Pyrexia [Unknown]
  - Feeling abnormal [Unknown]
  - Vomiting [Recovered/Resolved]

NARRATIVE: CASE EVENT DATE: 20191024
